FAERS Safety Report 12340492 (Version 1)
Quarter: 2016Q2

REPORT INFORMATION
  Report Type: Spontaneous
  Country: US (occurrence: None)
  Receive Date: 20160505
  Receipt Date: 20160505
  Transmission Date: 20160815
  Serious: Yes (Other)
  Sender: FDA-Public Use
  Company Number: None

PATIENT
  Age: 60 Year
  Sex: Female
  Weight: 104.33 kg

DRUGS (7)
  1. BIOTIN [Concomitant]
     Active Substance: BIOTIN
  2. MULTI VITAMIN MINERAL [Concomitant]
  3. BYSTOLIC [Concomitant]
     Active Substance: NEBIVOLOL HYDROCHLORIDE
  4. RESTASIS [Suspect]
     Active Substance: CYCLOSPORINE
     Indication: DRY EYE
     Route: 031
     Dates: start: 20141001, end: 20150601
  5. LYSINE [Concomitant]
     Active Substance: LYSINE
  6. CINNAMON. [Concomitant]
     Active Substance: CINNAMON
  7. RESTASIS [Concomitant]
     Active Substance: CYCLOSPORINE

REACTIONS (5)
  - Drug dependence [None]
  - Rebound effect [None]
  - Dry eye [None]
  - Blood pressure increased [None]
  - Drug withdrawal syndrome [None]
